FAERS Safety Report 16003749 (Version 2)
Quarter: 2025Q3

REPORT INFORMATION
  Report Type: Report from Study
  Country: US (occurrence: US)
  Receive Date: 20190226
  Receipt Date: 20250722
  Transmission Date: 20251021
  Serious: Yes (Other)
  Sender: AUROBINDO
  Company Number: US-AUROBINDO-AUR-APL-2019-009329

PATIENT
  Age: 28 Year
  Sex: Male

DRUGS (11)
  1. RISPERIDONE [Suspect]
     Active Substance: RISPERIDONE
     Indication: Aggression
     Route: 065
  2. RISPERIDONE [Suspect]
     Active Substance: RISPERIDONE
     Indication: Anxiety
  3. LAMOTRIGINE [Concomitant]
     Active Substance: LAMOTRIGINE
     Indication: Seizure
     Dosage: 100 MILLIGRAM, TWO TIMES A DAY,100 MG IN THE MORNING AND 100 MG AT NIGHT
     Route: 065
  4. SENNA [Concomitant]
     Active Substance: SENNOSIDES
     Indication: Constipation
     Route: 065
  5. LEVOTHYROXINE [Concomitant]
     Active Substance: LEVOTHYROXINE
     Indication: Hypothyroidism
     Route: 065
  6. POLYETHYLENE GLYCOL [Concomitant]
     Active Substance: POLYETHYLENE GLYCOL
     Indication: Constipation
     Route: 065
  7. MIRTAZAPINE [Concomitant]
     Active Substance: MIRTAZAPINE
     Indication: Anxiety
     Route: 065
  8. BUSPIRONE [Concomitant]
     Active Substance: BUSPIRONE HYDROCHLORIDE
     Indication: Anxiety
     Route: 065
  9. BUSPIRONE [Concomitant]
     Active Substance: BUSPIRONE HYDROCHLORIDE
     Dosage: 2.5 MILLIGRAM, TWO TIMES A DAY(FOR 1 WEEK)
     Route: 065
  10. BUSPIRONE [Concomitant]
     Active Substance: BUSPIRONE HYDROCHLORIDE
     Dosage: 2.5 MILLIGRAM, EVERY WEEK
     Route: 065
  11. BUSPIRONE [Concomitant]
     Active Substance: BUSPIRONE HYDROCHLORIDE
     Dosage: 10 MILLIGRAM, TWO TIMES A DAY
     Route: 065

REACTIONS (1)
  - Aggression [Unknown]
